FAERS Safety Report 20075527 (Version 1)
Quarter: 2021Q4

REPORT INFORMATION
  Report Type: Spontaneous
  Country: FR (occurrence: FR)
  Receive Date: 20211116
  Receipt Date: 20211116
  Transmission Date: 20220304
  Serious: Yes (Hospitalization)
  Sender: FDA-Public Use
  Company Number: None

PATIENT
  Age: 65 Year
  Sex: Male

DRUGS (7)
  1. OXCARBAZEPINE [Suspect]
     Active Substance: OXCARBAZEPINE
     Indication: Wrong patient
     Dosage: 150 MG, QD
     Route: 048
     Dates: start: 20210816, end: 20210816
  2. LAMOTRIGINE [Suspect]
     Active Substance: LAMOTRIGINE
     Indication: Wrong patient
     Dosage: 100 MG, QD
     Route: 048
     Dates: start: 20210816, end: 20210816
  3. CLONAZEPAM [Suspect]
     Active Substance: CLONAZEPAM
     Indication: Wrong patient
     Dosage: 2.5 MG, QD
     Route: 048
     Dates: start: 20210816, end: 20210816
  4. OLANZAPINE [Suspect]
     Active Substance: OLANZAPINE
     Indication: Wrong patient
     Dosage: 20 MG, QD
     Route: 048
     Dates: start: 20210816, end: 20210816
  5. PREGABALIN [Suspect]
     Active Substance: PREGABALIN
     Indication: Wrong patient
     Dosage: 75 MG, QD
     Route: 048
     Dates: start: 20210816, end: 20210816
  6. TRAMADOL [Suspect]
     Active Substance: TRAMADOL
     Indication: Wrong patient
     Dosage: 50 MG, QD
     Route: 048
     Dates: start: 20210816, end: 20210816
  7. CYAMEMAZINE [Suspect]
     Active Substance: CYAMEMAZINE
     Indication: Wrong patient
     Dosage: 25 MG, QD
     Route: 048
     Dates: start: 20210816, end: 20210816

REACTIONS (4)
  - Hypotension [Recovered/Resolved]
  - Coma [Recovered/Resolved]
  - Product administration error [Recovered/Resolved]
  - Wrong patient [Recovered/Resolved]

NARRATIVE: CASE EVENT DATE: 20210816
